FAERS Safety Report 25596866 (Version 1)
Quarter: 2025Q3

REPORT INFORMATION
  Report Type: Spontaneous
  Country: CN (occurrence: CN)
  Receive Date: 20250723
  Receipt Date: 20250723
  Transmission Date: 20251020
  Serious: Yes (Other)
  Sender: EISAI
  Company Number: CN-Eisai-EC-2025-191616

PATIENT
  Age: 75 Year
  Sex: Male

DRUGS (2)
  1. LENVATINIB [Suspect]
     Active Substance: LENVATINIB
     Indication: Product used for unknown indication
     Dates: start: 20250525, end: 202506
  2. LENVATINIB [Suspect]
     Active Substance: LENVATINIB
     Dates: start: 20250605, end: 202506

REACTIONS (2)
  - Incoherent [Recovered/Resolved]
  - Irritability [Recovered/Resolved]

NARRATIVE: CASE EVENT DATE: 20250610
